FAERS Safety Report 8379547-1 (Version None)
Quarter: 2012Q2

REPORT INFORMATION
  Report Type: 
  Country: None (occurrence: None)
  Receive Date: 20120523
  Receipt Date: 20120514
  Transmission Date: 20120825
  Serious: Yes (Other)
  Sender: FDA-Public Use
  Company Number: US-ASTRAZENECA-2012SE17555

PATIENT
  Age: 83 Year
  Sex: Male

DRUGS (3)
  1. TOPROL-XL [Suspect]
     Dosage: ENTIRE TABLET
     Route: 048
  2. TOPROL-XL [Suspect]
     Dosage: HALF TABLET
     Route: 048
  3. NORVASC [Concomitant]

REACTIONS (5)
  - HYPERTENSION [None]
  - AORTIC ANEURYSM [None]
  - RENAL FAILURE CHRONIC [None]
  - DRUG INEFFECTIVE [None]
  - PROCEDURAL COMPLICATION [None]
